FAERS Safety Report 10950949 (Version 1)
Quarter: 2015Q1

REPORT INFORMATION
  Report Type: Spontaneous
  Country: US (occurrence: None)
  Receive Date: 20150226
  Receipt Date: 20150226
  Transmission Date: 20150721
  Serious: Yes (Other)
  Sender: FDA-Public Use
  Company Number: TPA2012A02176

PATIENT
  Age: 73 Year
  Sex: Male

DRUGS (1)
  1. PREVACID [Suspect]
     Active Substance: LANSOPRAZOLE

REACTIONS (3)
  - Abdominal discomfort [None]
  - Malaise [None]
  - Myocardial infarction [None]
